FAERS Safety Report 10955180 (Version 1)
Quarter: 2015Q1

REPORT INFORMATION
  Report Type: Report from Study
  Country: CN (occurrence: CN)
  Receive Date: 20150326
  Receipt Date: 20150326
  Transmission Date: 20150721
  Serious: Yes (Death, Other)
  Sender: FDA-Public Use
  Company Number: CN-ROCHE-1552707

PATIENT

DRUGS (11)
  1. MYCOPHENOLATE MOFETIL. [Suspect]
     Active Substance: MYCOPHENOLATE MOFETIL
     Indication: PROPHYLAXIS AGAINST TRANSPLANT REJECTION
     Dosage: 1500-2000 MG/DAY
     Route: 065
  2. TACROLIMUS. [Suspect]
     Active Substance: TACROLIMUS
     Indication: PROPHYLAXIS AGAINST TRANSPLANT REJECTION
     Route: 065
  3. METHYLPREDNISOLONE. [Suspect]
     Active Substance: METHYLPREDNISOLONE
     Dosage: DECREASED BY 4 MG EVERY 3 - 5 DAYS AND
     Route: 048
  4. METHYLPREDNISOLONE. [Suspect]
     Active Substance: METHYLPREDNISOLONE
     Indication: PROPHYLAXIS AGAINST TRANSPLANT REJECTION
     Dosage: DURING SURGERY
     Route: 041
  5. METHYLPREDNISOLONE. [Suspect]
     Active Substance: METHYLPREDNISOLONE
     Route: 048
  6. SIROLIMUS. [Suspect]
     Active Substance: SIROLIMUS
     Indication: PROPHYLAXIS AGAINST TRANSPLANT REJECTION
     Route: 065
  7. METHYLPREDNISOLONE. [Suspect]
     Active Substance: METHYLPREDNISOLONE
     Indication: PROPHYLAXIS AGAINST TRANSPLANT REJECTION
     Dosage: 4 DAYS AFTER SURGERY
     Route: 048
  8. METHYLPREDNISOLONE. [Suspect]
     Active Substance: METHYLPREDNISOLONE
     Dosage: ADMINISTERED FOR 3 CONSECUTIVE DAYS
     Route: 041
  9. CYCLOSPORINE. [Suspect]
     Active Substance: CYCLOSPORINE
     Indication: PROPHYLAXIS AGAINST TRANSPLANT REJECTION
     Route: 065
  10. ANTI-THYMOCYTE GLOBULIN (RABBIT) NOS [Suspect]
     Active Substance: LAPINE T-LYMPHOCYTE IMMUNE GLOBULIN
     Indication: PROPHYLAXIS AGAINST TRANSPLANT REJECTION
     Dosage: FOR 10 DAYS
     Route: 065
  11. BASILIXIMAB [Suspect]
     Active Substance: BASILIXIMAB
     Indication: PROPHYLAXIS AGAINST TRANSPLANT REJECTION
     Dosage: INDUCTION THERAPY: 2 HOURS BEFORE SURGERY AND 4 DAYS AFTER SURGERY
     Route: 065

REACTIONS (17)
  - Acute respiratory distress syndrome [Fatal]
  - Pneumonia staphylococcal [Recovering/Resolving]
  - Pneumonia bacterial [Recovering/Resolving]
  - Leukopenia [Unknown]
  - Pneumonia escherichia [Recovering/Resolving]
  - Pneumonia cytomegaloviral [Fatal]
  - Thrombocytopenia [Fatal]
  - Pneumonia klebsiella [Recovering/Resolving]
  - Respiratory tract haemorrhage [Fatal]
  - Pneumonia fungal [Recovering/Resolving]
  - Pneumocystis jirovecii pneumonia [Recovering/Resolving]
  - Pneumonia [Recovering/Resolving]
  - Enterobacter pneumonia [Recovering/Resolving]
  - Pneumonia streptococcal [Recovering/Resolving]
  - Candida pneumonia [Recovering/Resolving]
  - Respiratory failure [Unknown]
  - Pneumonia fungal [Fatal]
